FAERS Safety Report 8790655 (Version 4)
Quarter: 2012Q4

REPORT INFORMATION
  Report Type: Spontaneous
  Country: US (occurrence: None)
  Receive Date: 20120906
  Receipt Date: 20121031
  Transmission Date: 20130627
  Serious: Yes (Other)
  Sender: FDA-Public Use
  Company Number: AUR-APL-2012-03761

PATIENT
  Age: 48 Year
  Sex: Male

DRUGS (1)
  1. ZOLPIDEM [Suspect]
     Indication: SLEEP DIFFICULT
     Dates: end: 201206

REACTIONS (29)
  - Drug ineffective [None]
  - Sleep disorder [None]
  - Middle insomnia [None]
  - Malaise [None]
  - Limb injury [None]
  - Accident at work [None]
  - Mood swings [None]
  - Aggression [None]
  - Abnormal dreams [None]
  - Loss of consciousness [None]
  - Memory impairment [None]
  - Rapid eye movements sleep abnormal [None]
  - Abnormal behaviour [None]
  - Dissociative identity disorder [None]
  - Crying [None]
  - Hallucination [None]
  - Nightmare [None]
  - Fear [None]
  - Discomfort [None]
  - Unevaluable event [None]
  - Hangover [None]
  - Feeling abnormal [None]
  - Nausea [None]
  - Dysarthria [None]
  - Gait disturbance [None]
  - Coordination abnormal [None]
  - Cognitive disorder [None]
  - Social problem [None]
  - Erectile dysfunction [None]
